FAERS Safety Report 9660580 (Version 1)
Quarter: 2013Q4

REPORT INFORMATION
  Report Type: Spontaneous
  Country: FR (occurrence: FR)
  Receive Date: 20131031
  Receipt Date: 20131031
  Transmission Date: 20140711
  Serious: Yes (Other)
  Sender: FDA-Public Use
  Company Number: FR-PFIZER INC-2013306862

PATIENT
  Age: 66 Year
  Sex: Female

DRUGS (1)
  1. SUTENT [Suspect]
     Dosage: UNK

REACTIONS (5)
  - Immunosuppression [Unknown]
  - Ecchymosis [Unknown]
  - Haemangioma [Unknown]
  - Anaemia [Unknown]
  - Platelet count decreased [Unknown]
